FAERS Safety Report 9586173 (Version 2)
Quarter: 2013Q4

REPORT INFORMATION
  Report Type: Spontaneous
  Country: FR (occurrence: None)
  Receive Date: 20131001
  Receipt Date: 20131021
  Transmission Date: 20140711
  Serious: Yes (Hospitalization, Other)
  Sender: FDA-Public Use
  Company Number: SYM-2013-03325

PATIENT
  Age: 46 Year
  Sex: Male

DRUGS (2)
  1. TARGRETIN [Suspect]
     Indication: MYCOSIS FUNGOIDES
     Route: 048
     Dates: start: 20030106, end: 20060215
  2. BETNEVAL (BETAMETHASONE VALERATE) (BETAMETHASONE VALERATE) [Concomitant]

REACTIONS (15)
  - Glomerulonephritis acute [None]
  - Renal failure [None]
  - Xerosis [None]
  - Dyslipidaemia [None]
  - Muscle spasms [None]
  - Blood pressure decreased [None]
  - Insomnia [None]
  - Sexual dysfunction [None]
  - Depression [None]
  - Dialysis [None]
  - Scar [None]
  - Flatulence [None]
  - Diarrhoea [None]
  - Wound [None]
  - Renal transplant [None]
